FAERS Safety Report 6292006-5 (Version None)
Quarter: 2009Q3

REPORT INFORMATION
  Report Type: 
  Country: None (occurrence: None)
  Receive Date: 20090729
  Receipt Date: 20090716
  Transmission Date: 20100115
  Serious: Yes (Hospitalization)
  Sender: FDA-Public Use
  Company Number: ALK_00914_2009

PATIENT
  Age: 24 Year
  Sex: Female

DRUGS (4)
  1. VIVITROL [Suspect]
     Indication: ALCOHOLISM
     Dosage: INTRAMUSCULAR
     Route: 030
     Dates: start: 20090601
  2. DEMEROL [Suspect]
     Indication: PAIN
     Dosage: 25 MG Q1H INTRAVENOUS (NOT OTHERWISE SPECIFIED)
     Dates: start: 20090716, end: 20090719
  3. SEROQUEL [Concomitant]
  4. DEPAKOTE [Concomitant]

REACTIONS (1)
  - INTESTINAL OBSTRUCTION [None]
